FAERS Safety Report 7759531-9 (Version None)
Quarter: 2011Q3

REPORT INFORMATION
  Report Type: 
  Country: None (occurrence: None)
  Receive Date: 20110919
  Receipt Date: 20110919
  Transmission Date: 20111222
  Serious: No
  Sender: FDA-Public Use
  Company Number: None

PATIENT
  Sex: Female
  Weight: 90.718 kg

DRUGS (3)
  1. VENLAFAXINE HCL EXTENDED-RELEASE [Suspect]
     Indication: DEPRESSION
     Dosage: 150MG
     Route: 048
     Dates: start: 20110918, end: 20110918
  2. VENLAFAXINE HCL EXTENDED-RELEASE [Suspect]
     Indication: PANIC DISORDER
     Dosage: 150MG
     Route: 048
     Dates: start: 20110918, end: 20110918
  3. VENLAFAXINE HCL EXTENDED-RELEASE [Suspect]
     Indication: ANXIETY
     Dosage: 150MG
     Route: 048
     Dates: start: 20110918, end: 20110918

REACTIONS (7)
  - NAUSEA [None]
  - HEADACHE [None]
  - PALPITATIONS [None]
  - PRODUCT SUBSTITUTION ISSUE [None]
  - CRYING [None]
  - APATHY [None]
  - FEELING ABNORMAL [None]
